FAERS Safety Report 24804961 (Version 4)
Quarter: 2025Q1

REPORT INFORMATION
  Report Type: Spontaneous
  Country: US (occurrence: US)
  Receive Date: 20250103
  Receipt Date: 20250212
  Transmission Date: 20250409
  Serious: No
  Sender: PFIZER
  Company Number: US-PFIZER INC-202400330959

PATIENT
  Age: 9 Year
  Sex: Female
  Weight: 21.32 kg

DRUGS (3)
  1. GENOTROPIN [Suspect]
     Active Substance: SOMATROPIN
     Indication: Growth failure
     Dosage: 1.2 MILLIGRAMS, PER DAY
     Dates: start: 202304
  2. FLUOXETINE [Concomitant]
     Active Substance: FLUOXETINE HYDROCHLORIDE
  3. IRON [Concomitant]
     Active Substance: IRON
     Route: 042

REACTIONS (1)
  - Device issue [Unknown]
